FAERS Safety Report 12691617 (Version 1)
Quarter: 2016Q3

REPORT INFORMATION
  Report Type: Spontaneous
  Country: JP (occurrence: JP)
  Receive Date: 20160826
  Receipt Date: 20160826
  Transmission Date: 20161109
  Serious: Yes (Other)
  Sender: FDA-Public Use
  Company Number: JP-009507513-1608JPN010984

PATIENT
  Sex: Female

DRUGS (12)
  1. REMERON [Suspect]
     Active Substance: MIRTAZAPINE
     Dosage: 1 DF, UNK
     Route: 048
  2. PAXIL [Suspect]
     Active Substance: PAROXETINE HYDROCHLORIDE
     Indication: DEPRESSION
     Dosage: DAOILY DOSAGE UNKNOWN
     Route: 048
  3. BI SIFROL [Suspect]
     Active Substance: PRAMIPEXOLE
     Dosage: 2 DF, UNK
     Route: 048
  4. MENESIT TABLETS - 100 [Suspect]
     Active Substance: CARBIDOPA\LEVODOPA
     Indication: PARKINSON^S DISEASE
     Dosage: 50 MG, BID, IN EVENING AND MORNING
     Route: 048
     Dates: start: 201605
  5. BI SIFROL [Suspect]
     Active Substance: PRAMIPEXOLE
     Indication: PARKINSON^S DISEASE
     Dosage: 3 DF, UNK
     Route: 048
  6. AMLODIN [Suspect]
     Active Substance: AMLODIPINE BESYLATE
     Indication: ANGINA PECTORIS
     Dosage: DAILY DOSAGE UNKNOWN
     Route: 048
  7. LUNESTA [Concomitant]
     Active Substance: ESZOPICLONE
     Indication: INSOMNIA
     Dosage: DAILY DOSAGE UNKNOWN
     Route: 048
  8. GASTER [Concomitant]
     Active Substance: FAMOTIDINE
     Indication: GASTROINTESTINAL DISORDER
     Dosage: DAILY DOSAGE UNKNOWN
     Route: 048
  9. SELBEX [Concomitant]
     Active Substance: TEPRENONE
     Indication: GASTROINTESTINAL DISORDER
     Dosage: DAILY DOSAGE UNKNOWN
     Route: 065
  10. MEILAX [Concomitant]
     Active Substance: ETHYL LOFLAZEPATE
     Indication: INSOMNIA
     Dosage: DAILY DOSAGE UNKNOWN
     Route: 048
  11. NAUZELIN [Concomitant]
     Active Substance: DOMPERIDONE
     Indication: GASTROINTESTINAL DISORDER
     Dosage: DAILY DOSAGE UNKNOWN
     Route: 065
  12. REMERON [Suspect]
     Active Substance: MIRTAZAPINE
     Dosage: 0.5 DF, UNK
     Route: 048

REACTIONS (8)
  - Cataract [Unknown]
  - Diarrhoea [Unknown]
  - Lacrimation increased [Unknown]
  - Parkinson^s disease [Unknown]
  - Chest discomfort [Unknown]
  - Asthenia [Unknown]
  - Gastrointestinal disorder [Unknown]
  - Angina pectoris [Unknown]
